FAERS Safety Report 25686564 (Version 2)
Quarter: 2025Q4

REPORT INFORMATION
  Report Type: Spontaneous
  Country: US (occurrence: US)
  Receive Date: 20250816
  Receipt Date: 20251103
  Transmission Date: 20260117
  Serious: No
  Sender: SANOFI AVENTIS
  Company Number: US-SA-2025SA238565

PATIENT
  Age: 16 Year
  Sex: Male

DRUGS (1)
  1. DUPIXENT [Suspect]
     Active Substance: DUPILUMAB
     Indication: Dermatitis atopic
     Dosage: 300 MG, QOW
     Route: 065
     Dates: start: 202506

REACTIONS (4)
  - Sinus disorder [Unknown]
  - Lacrimation increased [Unknown]
  - Epistaxis [Unknown]
  - Rash [Unknown]

NARRATIVE: CASE EVENT DATE: 20250101
